FAERS Safety Report 6021280-5 (Version None)
Quarter: 2008Q4

REPORT INFORMATION
  Report Type: 
  Country: None (occurrence: None)
  Receive Date: 20081222
  Receipt Date: 20081204
  Transmission Date: 20090506
  Serious: Yes (Hospitalization)
  Sender: FDA-Public Use
  Company Number: 1000001507

PATIENT
  Age: 71 Year
  Sex: Female

DRUGS (5)
  1. ESCITALOPRAM OXALATE [Suspect]
     Indication: DEPRESSION
     Dosage: 20 MG (20 MG, 1 IN 1 D), ORAL
     Route: 048
     Dates: start: 20080530, end: 20080601
  2. VERATRAN [Suspect]
     Indication: INSOMNIA
     Dosage: 1 DOSAGE FORMS (1 DOSAGE FORMS, 1 IN 1 D), ORAL
     Route: 048
     Dates: start: 20080530, end: 20080601
  3. IMOVANE [Suspect]
     Dosage: ORAL
     Route: 048
     Dates: end: 20080606
  4. AMLOR (CAPSULES) [Suspect]
     Dosage: (10 MG), ORAL
     Route: 048
  5. NIFLURIL [Suspect]
     Dosage: ORAL
     Route: 048
     Dates: end: 20080606

REACTIONS (9)
  - ANAEMIA [None]
  - DEHYDRATION [None]
  - FALL [None]
  - HEAD INJURY [None]
  - HYPONATRAEMIA [None]
  - LOSS OF CONSCIOUSNESS [None]
  - NEURODEGENERATIVE DISORDER [None]
  - ORTHOSTATIC HYPOTENSION [None]
  - RENAL FAILURE [None]
